FAERS Safety Report 6440089-1 (Version None)
Quarter: 2009Q4

REPORT INFORMATION
  Report Type: 
  Country: None (occurrence: None)
  Receive Date: 20091113
  Receipt Date: 20081002
  Transmission Date: 20100525
  Serious: No
  Sender: FDA-Public Use
  Company Number: A0750492A

PATIENT
  Age: 84 Year
  Sex: Male

DRUGS (9)
  1. CARVEDILOL [Suspect]
     Dosage: 12.5MG TWICE PER DAY
     Route: 048
     Dates: start: 20080701
  2. ASPIRIN [Concomitant]
  3. LASIX [Concomitant]
  4. LISINOPRIL [Concomitant]
  5. SIMVASTATIN [Concomitant]
  6. POTASSIUM CHLORIDE [Concomitant]
  7. VICODIN [Concomitant]
  8. ALBUTEROL [Concomitant]
  9. NITROFURANTOIN [Concomitant]

REACTIONS (1)
  - DRY MOUTH [None]
